FAERS Safety Report 6889353-2 (Version None)
Quarter: 2010Q3

REPORT INFORMATION
  Report Type: 
  Country: None (occurrence: None)
  Receive Date: 20100730
  Receipt Date: 20080205
  Transmission Date: 20110219
  Serious: No
  Sender: FDA-Public Use
  Company Number: US-PFIZER INC-2008001709

PATIENT
  Sex: Male
  Weight: 88.636 kg

DRUGS (3)
  1. LIPITOR [Suspect]
     Indication: BLOOD CHOLESTEROL
     Route: 048
     Dates: start: 20061221, end: 20071217
  2. CADUET [Suspect]
     Indication: BLOOD PRESSURE ABNORMAL
     Dosage: 5/10 MG
     Route: 048
     Dates: start: 20071217, end: 20080108
  3. VITAMINS [Concomitant]

REACTIONS (5)
  - ARTHRALGIA [None]
  - BLOOD PRESSURE INCREASED [None]
  - MYALGIA [None]
  - PAIN [None]
  - VIRAL UPPER RESPIRATORY TRACT INFECTION [None]
